FAERS Safety Report 16667477 (Version 3)
Quarter: 2019Q3

REPORT INFORMATION
  Report Type: Spontaneous
  Country: KR (occurrence: KR)
  Receive Date: 20190805
  Receipt Date: 20190816
  Transmission Date: 20191004
  Serious: Yes (Hospitalization, Other)
  Sender: FDA-Public Use
  Company Number: KR-PFIZER INC-2019324956

PATIENT
  Age: 56 Year
  Sex: Male

DRUGS (1)
  1. CHAMPIX [Suspect]
     Active Substance: VARENICLINE TARTRATE
     Indication: SMOKING CESSATION THERAPY
     Dosage: UNK UNK, 2X/DAY (IN THE MORNING AND EVENING)
     Route: 048
     Dates: start: 2019, end: 201908

REACTIONS (8)
  - Noninfective gingivitis [Recovering/Resolving]
  - Loss of consciousness [Unknown]
  - Gastrooesophageal reflux disease [Recovered/Resolved]
  - Gingival pain [Recovering/Resolving]
  - Pain [Not Recovered/Not Resolved]
  - Calculus urinary [Recovered/Resolved]
  - Fall [Unknown]
  - Injury [Not Recovered/Not Resolved]

NARRATIVE: CASE EVENT DATE: 201907
